FAERS Safety Report 7910632-1 (Version None)
Quarter: 2011Q4

REPORT INFORMATION
  Report Type: 
  Country: None (occurrence: None)
  Receive Date: 20111111
  Receipt Date: 20111108
  Transmission Date: 20120403
  Serious: Yes (Death, Other)
  Sender: FDA-Public Use
  Company Number: CA-ALLERGAN-1107309US

PATIENT
  Sex: Male

DRUGS (1)
  1. BOTULINUM TOXIN TYPE A [Suspect]
     Indication: MUSCLE SPASTICITY
     Dosage: 400 UNITS, SINGLE
     Route: 030
     Dates: start: 20110304, end: 20110304

REACTIONS (5)
  - EATING DISORDER [None]
  - PNEUMONIA ASPIRATION [None]
  - VIRAL INFECTION [None]
  - RESPIRATORY DISTRESS [None]
  - CREPITATIONS [None]
